FAERS Safety Report 7942622-7 (Version None)
Quarter: 2011Q4

REPORT INFORMATION
  Report Type: 
  Country: None (occurrence: None)
  Receive Date: 20111128
  Receipt Date: 20111121
  Transmission Date: 20120403
  Serious: Yes (Other)
  Sender: FDA-Public Use
  Company Number: FR-BAYER-2011-078204

PATIENT
  Age: 42 Year
  Sex: Male
  Weight: 82 kg

DRUGS (1)
  1. LEVITRA [Suspect]
     Dosage: 20 MG, UNK
     Dates: start: 20110824

REACTIONS (1)
  - DERMATITIS BULLOUS [None]
